FAERS Safety Report 13948284 (Version 2)
Quarter: 2017Q3

REPORT INFORMATION
  Report Type: Spontaneous
  Country: JP (occurrence: JP)
  Receive Date: 20170908
  Receipt Date: 20170911
  Transmission Date: 20171128
  Serious: Yes (Hospitalization)
  Sender: FDA-Public Use
  Company Number: JP-ROCHE-1989719

PATIENT
  Age: 83 Year
  Sex: Male

DRUGS (1)
  1. ROCEPHIN [Suspect]
     Active Substance: CEFTRIAXONE SODIUM
     Indication: PROSTATITIS
     Dosage: DOSAGE IS UNCERTAIN.
     Route: 042

REACTIONS (4)
  - Pancreatitis acute [Unknown]
  - Pseudocholelithiasis [Unknown]
  - Cholangitis [Unknown]
  - Septic shock [Unknown]
